FAERS Safety Report 26045513 (Version 1)
Quarter: 2025Q4

REPORT INFORMATION
  Report Type: Spontaneous
  Country: EU (occurrence: EU)
  Receive Date: 20251114
  Receipt Date: 20251114
  Transmission Date: 20260117
  Serious: Yes (Hospitalization, Other)
  Sender: TEVA
  Company Number: EU-EMB-M202407951-2

PATIENT
  Sex: Female

DRUGS (2)
  1. PAROXETINE [Suspect]
     Active Substance: PAROXETINE
     Indication: Anxiety disorder
     Dosage: DIFFERING DOSAGE INFORMATION: 15-30 MG/D
     Route: 064
     Dates: start: 202406, end: 202503
  2. FOLIC ACID [Concomitant]
     Active Substance: FOLIC ACID
     Indication: Prophylaxis of neural tube defect
     Dosage: START AND END DATE UNKNOWN, AT LEAST FOLIC ACID INTAKE AT TIME OF FIRST CONTACT IN GW 9
     Route: 064

REACTIONS (5)
  - Poor feeding infant [Recovering/Resolving]
  - Neonatal respiratory distress [Recovered/Resolved]
  - Temperature regulation disorder [Recovered/Resolved]
  - Foetal exposure during pregnancy [Unknown]
  - Hypotonia neonatal [Recovered/Resolved]

NARRATIVE: CASE EVENT DATE: 20250301
